FAERS Safety Report 10424169 (Version 1)
Quarter: 2014Q3

REPORT INFORMATION
  Report Type: Spontaneous
  Country: US (occurrence: US)
  Receive Date: 20140902
  Receipt Date: 20140902
  Transmission Date: 20150326
  Serious: No
  Sender: FDA-Public Use
  Company Number: US-PFIZER INC-2014239083

PATIENT
  Age: 72 Year
  Sex: Male
  Weight: 81.63 kg

DRUGS (1)
  1. ATORVASTATIN CALCIUM. [Suspect]
     Active Substance: ATORVASTATIN CALCIUM
     Indication: BLOOD CHOLESTEROL INCREASED
     Dosage: 40 MG, DAILY
     Dates: start: 201405, end: 201406

REACTIONS (7)
  - Fatigue [Recovering/Resolving]
  - Pollakiuria [Recovering/Resolving]
  - Muscle spasms [Recovering/Resolving]
  - Myalgia [Not Recovered/Not Resolved]
  - Arthropathy [Recovering/Resolving]
  - Asthenia [Recovering/Resolving]
  - Feeling abnormal [Recovering/Resolving]

NARRATIVE: CASE EVENT DATE: 201406
